FAERS Safety Report 24065242 (Version 1)
Quarter: 2024Q3

REPORT INFORMATION
  Report Type: Spontaneous
  Country: US (occurrence: None)
  Receive Date: 20240708
  Receipt Date: 20240708
  Transmission Date: 20241016
  Serious: Yes (Disabling, Other)
  Sender: Public
  Company Number: None

PATIENT
  Age: 17 Year
  Sex: Female
  Weight: 40.5 kg

DRUGS (3)
  1. DEPO-PROVERA [Suspect]
     Active Substance: MEDROXYPROGESTERONE ACETATE
     Indication: Menstrual disorder
     Dates: start: 20231010
  2. NURTEC ODT [Concomitant]
     Active Substance: RIMEGEPANT SULFATE
  3. VITAMINS [Concomitant]
     Active Substance: VITAMINS

REACTIONS (10)
  - Emotional disorder [None]
  - Educational problem [None]
  - Crying [None]
  - Feeling abnormal [None]
  - Anxiety [None]
  - Abdominal pain [None]
  - Abdominal migraine [None]
  - Arthralgia [None]
  - Bedridden [None]
  - Drug ineffective [None]

NARRATIVE: CASE EVENT DATE: 20231010
